FAERS Safety Report 16211389 (Version 2)
Quarter: 2019Q2

REPORT INFORMATION
  Report Type: Spontaneous
  Country: IE (occurrence: IE)
  Receive Date: 20190418
  Receipt Date: 20190604
  Transmission Date: 20190711
  Serious: Yes (Hospitalization, Other)
  Sender: FDA-Public Use
  Company Number: IE-AUROBINDO-AUR-APL-2019-020754

PATIENT

DRUGS (3)
  1. PIPERACILLIN AND TAZOBACTAM [Suspect]
     Active Substance: PIPERACILLIN SODIUM\TAZOBACTAM SODIUM
     Indication: NEUTROPENIC SEPSIS
     Dosage: ESCALATED TO MEROPENEM
     Route: 065
  2. MEROPENEM. [Concomitant]
     Active Substance: MEROPENEM
     Indication: SEPSIS
     Dosage: UNK
     Route: 065
  3. PIPERACILLIN AND TAZOBACTAM [Suspect]
     Active Substance: PIPERACILLIN SODIUM\TAZOBACTAM SODIUM
     Dosage: DEESCALATED TO PIPERACILLIN+TAZOBACTAM
     Route: 065

REACTIONS (6)
  - Haemolysis [Recovered/Resolved]
  - Hepatic function abnormal [Recovering/Resolving]
  - Haemoglobin decreased [Recovered/Resolved]
  - Haemorrhage [Recovering/Resolving]
  - Back pain [Recovering/Resolving]
  - Blood lactate dehydrogenase increased [Recovered/Resolved]
